FAERS Safety Report 12678788 (Version 1)
Quarter: 2016Q3

REPORT INFORMATION
  Report Type: Spontaneous
  Country: US (occurrence: US)
  Receive Date: 20160824
  Receipt Date: 20160824
  Transmission Date: 20161109
  Serious: No
  Sender: FDA-Public Use
  Company Number: US-ASTRAZENECA-2016SE52492

PATIENT
  Sex: Female

DRUGS (21)
  1. MULTIVITAMINS [Concomitant]
     Active Substance: VITAMINS
     Route: 048
  2. LIDODERM [Concomitant]
     Active Substance: LIDOCAINE
  3. NEXIUM [Concomitant]
     Active Substance: ESOMEPRAZOLE MAGNESIUM
     Route: 048
  4. PROAIR HFA [Concomitant]
     Active Substance: ALBUTEROL SULFATE
     Dosage: 108 MCG 2 PUFFS AS NEEDED INHALATION EVERY 4 HRS
  5. CARDIZEM [Concomitant]
     Active Substance: DILTIAZEM HYDROCHLORIDE
     Route: 048
  6. CRESTOR [Concomitant]
     Active Substance: ROSUVASTATIN CALCIUM
     Route: 048
  7. SYMBICORT [Suspect]
     Active Substance: BUDESONIDE\FORMOTEROL FUMARATE DIHYDRATE
     Dosage: 160/4.5 MCG 2 PUFFS INHALATION TWICE A DAY
     Route: 055
  8. VITAMIN D3 [Concomitant]
     Active Substance: CHOLECALCIFEROL
     Dosage: 5000 UNIT DAILY
     Route: 048
  9. WARFARIN SODIUM. [Concomitant]
     Active Substance: WARFARIN SODIUM
     Route: 048
  10. ZESTRIL [Suspect]
     Active Substance: LISINOPRIL
     Route: 048
  11. LYRICA [Suspect]
     Active Substance: PREGABALIN
     Route: 048
  12. VITAMIN B-6 [Concomitant]
     Active Substance: PYRIDOXINE
     Route: 048
  13. LASIX [Concomitant]
     Active Substance: FUROSEMIDE
     Route: 048
  14. METOPROLOL TARTRATE. [Concomitant]
     Active Substance: METOPROLOL TARTRATE
     Dosage: 100 MG 1 DF DAILY
     Route: 048
  15. TYLENOL [Concomitant]
     Active Substance: ACETAMINOPHEN
     Indication: ARTHRALGIA
     Route: 048
  16. OSCAL [Concomitant]
     Active Substance: CALCIUM CARBONATE
     Dosage: 500 D 1 TABLET ONCE A DAY
     Route: 048
  17. VITAMIN B12 [Concomitant]
     Active Substance: CYANOCOBALAMIN
     Route: 048
  18. ASPIRIN. [Concomitant]
     Active Substance: ASPIRIN
     Route: 048
  19. MICRO-K [Concomitant]
     Active Substance: POTASSIUM CHLORIDE
     Dosage: 10 MEQ 1 DF DAILY
     Route: 048
  20. DRY DRESSING [Concomitant]
     Dosage: TWO TIMES A DAY
  21. IMIPRAMINE [Concomitant]
     Active Substance: IMIPRAMINE
     Route: 048

REACTIONS (4)
  - Hyperlipidaemia [Unknown]
  - Asthma [Unknown]
  - Hypertension [Unknown]
  - Barrett^s oesophagus [Unknown]
